FAERS Safety Report 7962282-9 (Version None)
Quarter: 2011Q4

REPORT INFORMATION
  Report Type: 
  Country: None (occurrence: None)
  Receive Date: 20111207
  Receipt Date: 20111205
  Transmission Date: 20120403
  Serious: Yes (Death, Other)
  Sender: FDA-Public Use
  Company Number: PHEH2006US05805

PATIENT
  Sex: Female

DRUGS (1)
  1. ZOMETA [Suspect]

REACTIONS (7)
  - OSTEONECROSIS OF JAW [None]
  - ORAL PAIN [None]
  - BONE DISORDER [None]
  - GINGIVAL DISORDER [None]
  - LOOSE TOOTH [None]
  - DEATH [None]
  - ORAL INFECTION [None]
